FAERS Safety Report 18251812 (Version 1)
Quarter: 2020Q3

REPORT INFORMATION
  Report Type: Spontaneous
  Country: US (occurrence: US)
  Receive Date: 20200909
  Receipt Date: 20200909
  Transmission Date: 20201103
  Serious: Yes (Hospitalization)
  Sender: FDA-Public Use
  Company Number: None

PATIENT
  Sex: Male

DRUGS (5)
  1. TOBRAMYCIN. [Concomitant]
     Active Substance: TOBRAMYCIN
  2. SMZ/TMP DS [Concomitant]
     Active Substance: SULFAMETHOXAZOLE\TRIMETHOPRIM
  3. NAPROXEN. [Concomitant]
     Active Substance: NAPROXEN
  4. CEPHALEXIN. [Concomitant]
     Active Substance: CEPHALEXIN
  5. HUMIRA [Suspect]
     Active Substance: ADALIMUMAB
     Indication: OSTEOMYELITIS CHRONIC
     Dosage: ?          OTHER DOSE:1 SYR;?
     Route: 058
     Dates: start: 20200515

REACTIONS (2)
  - Surgery [None]
  - Testicular torsion [None]
